FAERS Safety Report 10411075 (Version 3)
Quarter: 2014Q3

REPORT INFORMATION
  Report Type: Spontaneous
  Country: US (occurrence: US)
  Receive Date: 20140826
  Receipt Date: 20140905
  Transmission Date: 20150326
  Serious: Yes (Death)
  Sender: FDA-Public Use
  Company Number: US-LUNDBECK-DKLU1102840

PATIENT
  Age: 4 Year
  Sex: Female

DRUGS (8)
  1. ONFI [Concomitant]
     Active Substance: CLOBAZAM
     Indication: AICARDI^S SYNDROME
  2. SABRIL [Suspect]
     Active Substance: VIGABATRIN
     Indication: INFANTILE SPASMS
  3. ONFI [Concomitant]
     Active Substance: CLOBAZAM
     Indication: INFANTILE SPASMS
     Dates: start: 20101206
  4. SABRIL [Suspect]
     Active Substance: VIGABATRIN
     Indication: EPILEPSY
     Route: 048
     Dates: start: 20140206, end: 20140814
  5. SABRIL [Suspect]
     Active Substance: VIGABATRIN
     Indication: INFANTILE SPASMS
  6. ONFI [Concomitant]
     Active Substance: CLOBAZAM
     Dates: start: 20121113
  7. SABRIL [Suspect]
     Active Substance: VIGABATRIN
     Indication: EPILEPSY
  8. SABRIL [Suspect]
     Active Substance: VIGABATRIN
     Indication: CONVULSION
     Route: 048
     Dates: start: 20121218

REACTIONS (1)
  - Death [Fatal]

NARRATIVE: CASE EVENT DATE: 20140814
